FAERS Safety Report 16883319 (Version 2)
Quarter: 2019Q4

REPORT INFORMATION
  Report Type: Spontaneous
  Country: FI (occurrence: FI)
  Receive Date: 20191004
  Receipt Date: 20191008
  Transmission Date: 20200122
  Serious: Yes (Other)
  Sender: FDA-Public Use
  Company Number: FI-ROCHE-2420629

PATIENT
  Age: 29 Year
  Sex: Female

DRUGS (5)
  1. SERETIDE [Concomitant]
     Active Substance: FLUTICASONE PROPIONATE\SALMETEROL XINAFOATE
     Dosage: 50/250 MICROG / DOSE
     Route: 065
  2. ESOMEPRAZOL [ESOMEPRAZOLE] [Concomitant]
     Active Substance: ESOMEPRAZOLE
     Route: 065
  3. INNOHEP [Concomitant]
     Active Substance: TINZAPARIN SODIUM
     Route: 065
  4. TECENTRIQ [Suspect]
     Active Substance: ATEZOLIZUMAB
     Indication: LUNG CANCER METASTATIC
     Dosage: THERAPY START DATE:. 10/SEP/2019
     Route: 041
  5. EMCONCOR CHF [Concomitant]
     Active Substance: BISOPROLOL FUMARATE
     Route: 065

REACTIONS (7)
  - Faecal calprotectin increased [Recovering/Resolving]
  - Pneumonitis [Recovering/Resolving]
  - Back pain [Recovering/Resolving]
  - Horner^s syndrome [Recovering/Resolving]
  - Blood thyroid stimulating hormone increased [Recovering/Resolving]
  - Diarrhoea [Recovered/Resolved]
  - Tachycardia [Recovering/Resolving]

NARRATIVE: CASE EVENT DATE: 201909
